FAERS Safety Report 19025703 (Version 1)
Quarter: 2021Q1

REPORT INFORMATION
  Report Type: Spontaneous
  Country: FR (occurrence: FR)
  Receive Date: 20210318
  Receipt Date: 20210318
  Transmission Date: 20210420
  Serious: Yes (Hospitalization)
  Sender: FDA-Public Use
  Company Number: FR-AXELLIA-003715

PATIENT
  Age: 14 Month
  Sex: Male

DRUGS (3)
  1. SULFAMETHOXAZOLE/TRIMETHOPRIM [Suspect]
     Active Substance: SULFAMETHOXAZOLE\TRIMETHOPRIM
     Indication: SEPSIS
     Dosage: NP
     Route: 042
     Dates: start: 20201209, end: 20201224
  2. VANCOMYCIN [Suspect]
     Active Substance: VANCOMYCIN
     Indication: SEPSIS
     Dosage: NP
     Route: 042
     Dates: start: 20201218, end: 20201224
  3. PIPERACILLIN SODIUM/TAZOBACTAM SODIUM [Suspect]
     Active Substance: PIPERACILLIN SODIUM\TAZOBACTAM SODIUM
     Indication: SEPSIS
     Dosage: NP
     Route: 042
     Dates: start: 20201216, end: 20201224

REACTIONS (1)
  - Rash [Recovering/Resolving]

NARRATIVE: CASE EVENT DATE: 20201224
